FAERS Safety Report 22179087 (Version 1)
Quarter: 2023Q2

REPORT INFORMATION
  Report Type: Spontaneous
  Country: GT (occurrence: GT)
  Receive Date: 20230406
  Receipt Date: 20230406
  Transmission Date: 20230721
  Serious: Yes (Other)
  Sender: FDA-Public Use
  Company Number: GT-BAYER-2023A044626

PATIENT
  Age: 56 Year
  Sex: Female

DRUGS (7)
  1. XARELTO [Suspect]
     Active Substance: RIVAROXABAN
     Indication: Vein disorder
     Dosage: 20 MG
     Route: 048
  2. LANSOPRAZOLE [Concomitant]
     Active Substance: LANSOPRAZOLE
     Indication: Gastritis
     Dosage: 30 MG
  3. LANTUS [Concomitant]
     Active Substance: INSULIN GLARGINE
     Indication: Diabetes mellitus
  4. BISOPROLOL FUMARATE\HYDROCHLOROTHIAZIDE [Concomitant]
     Active Substance: BISOPROLOL FUMARATE\HYDROCHLOROTHIAZIDE
  5. METGLITAL LEX [Concomitant]
     Indication: Diabetes mellitus
     Dosage: 4/850 MG
  6. VALSARTAN [Concomitant]
     Active Substance: VALSARTAN
     Dosage: 320/12.5 MG
  7. ASTIK SR [Concomitant]
     Dosage: 150 MG

REACTIONS (3)
  - Type 2 diabetes mellitus [Unknown]
  - Off label use [Unknown]
  - Hypertension [Unknown]
